FAERS Safety Report 6994188-6 (Version None)
Quarter: 2010Q3

REPORT INFORMATION
  Report Type: 
  Country: None (occurrence: None)
  Receive Date: 20100917
  Receipt Date: 20091001
  Transmission Date: 20110219
  Serious: Yes (Hospitalization)
  Sender: FDA-Public Use
  Company Number: US-ASTRAZENECA-2009SE17150

PATIENT
  Age: 12 Year
  Sex: Male
  Weight: 45.4 kg

DRUGS (3)
  1. SEROQUEL XR [Suspect]
     Route: 048
     Dates: start: 20090901
  2. ZOLOFT [Concomitant]
  3. DIVALPROEX SODIUM [Concomitant]

REACTIONS (1)
  - SUICIDAL BEHAVIOUR [None]
